FAERS Safety Report 23600951 (Version 1)
Quarter: 2024Q1

REPORT INFORMATION
  Report Type: Spontaneous
  Country: US (occurrence: None)
  Receive Date: 20240305
  Receipt Date: 20240305
  Transmission Date: 20240410
  Serious: Yes (Hospitalization)
  Sender: FDA-Public Use
  Company Number: None

PATIENT
  Age: 78 Year
  Sex: Female

DRUGS (1)
  1. KISQALI [Suspect]
     Active Substance: RIBOCICLIB
     Indication: Breast cancer female
     Dosage: OTHER FREQUENCY : Q D 21 ON 7 OFF;?

REACTIONS (3)
  - Malaise [None]
  - Vomiting [None]
  - Laboratory test abnormal [None]

NARRATIVE: CASE EVENT DATE: 20240219
